FAERS Safety Report 24248601 (Version 1)
Quarter: 2024Q3

REPORT INFORMATION
  Report Type: Other
  Country: CA (occurrence: CA)
  Receive Date: 20240826
  Receipt Date: 20240826
  Transmission Date: 20241016
  Serious: Yes (Other)
  Sender: PFIZER
  Company Number: CA-PFIZER INC-202400242051

PATIENT
  Age: 45 Year
  Sex: Female

DRUGS (17)
  1. METHOTREXATE SODIUM [Suspect]
     Active Substance: METHOTREXATE SODIUM
     Indication: Chronic cutaneous lupus erythematosus
     Route: 065
  2. ACITRETIN [Suspect]
     Active Substance: ACITRETIN
     Indication: Chronic cutaneous lupus erythematosus
     Dosage: 30 MG, 1X/DAY
     Route: 065
  3. ACITRETIN [Suspect]
     Active Substance: ACITRETIN
     Dosage: 25 MG, 1X/DAY
     Route: 065
  4. BETAMETHASONE [Suspect]
     Active Substance: BETAMETHASONE\BETAMETHASONE DIPROPIONATE
     Indication: Chronic cutaneous lupus erythematosus
     Route: 065
  5. CHLOROQUINE [Suspect]
     Active Substance: CHLOROQUINE
     Indication: Chronic cutaneous lupus erythematosus
     Dosage: 250 MG, 1X/DAY
     Route: 048
  6. CHLOROQUINE [Suspect]
     Active Substance: CHLOROQUINE
     Dosage: 250 MG, 1X/DAY
     Route: 048
  7. HYDROXYCHLOROQUINE [Suspect]
     Active Substance: HYDROXYCHLOROQUINE
     Indication: Chronic cutaneous lupus erythematosus
     Dosage: 400 MG, 1X/DAY
     Route: 048
  8. LEFLUNOMIDE [Suspect]
     Active Substance: LEFLUNOMIDE
     Indication: Chronic cutaneous lupus erythematosus
     Dosage: UNK
     Route: 065
  9. QUINACRINE [Suspect]
     Active Substance: QUINACRINE
     Indication: Chronic cutaneous lupus erythematosus
     Dosage: 100 MG, 1X/DAY
     Route: 048
  10. QUINACRINE [Suspect]
     Active Substance: QUINACRINE
     Dosage: UNK
     Route: 065
  11. TRIAMCINOLONE [Suspect]
     Active Substance: TRIAMCINOLONE
     Indication: Chronic cutaneous lupus erythematosus
     Route: 026
  12. CLOBETASOL [Concomitant]
     Active Substance: CLOBETASOL
     Indication: Chronic cutaneous lupus erythematosus
     Route: 065
  13. CYCLOPHOSPHAMIDE [Concomitant]
     Active Substance: CYCLOPHOSPHAMIDE
     Indication: Diffuse large B-cell lymphoma stage II
     Route: 065
  14. DOXORUBICIN HYDROCHLORIDE [Concomitant]
     Active Substance: DOXORUBICIN HYDROCHLORIDE
     Indication: Diffuse large B-cell lymphoma stage II
     Route: 065
  15. PREDNISONE [Concomitant]
     Active Substance: PREDNISONE
     Indication: Diffuse large B-cell lymphoma stage II
     Route: 065
  16. RITUXIMAB [Concomitant]
     Active Substance: RITUXIMAB
     Indication: Diffuse large B-cell lymphoma stage II
     Route: 065
  17. VINCRISTINE SULFATE [Concomitant]
     Active Substance: VINCRISTINE SULFATE
     Indication: Diffuse large B-cell lymphoma stage II
     Route: 065

REACTIONS (3)
  - Condition aggravated [Unknown]
  - Therapeutic product ineffective [Unknown]
  - Off label use [Unknown]
